FAERS Safety Report 9214572 (Version 3)
Quarter: 2013Q2

REPORT INFORMATION
  Report Type: Report from Study
  Country: TW (occurrence: TW)
  Receive Date: 20130405
  Receipt Date: 20130617
  Transmission Date: 20140414
  Serious: Yes (Congenital Anomaly, Other)
  Sender: FDA-Public Use
  Company Number: PHHY2013TW033041

PATIENT
  Sex: Male
  Weight: 3 kg

DRUGS (1)
  1. GLIVEC [Suspect]
     Dosage: MATERNAL DOSE (600MG DAILY)
     Route: 064
     Dates: start: 20090624, end: 20121009

REACTIONS (3)
  - Chromosomal deletion [Unknown]
  - Premature baby [Unknown]
  - Foetal exposure during pregnancy [Unknown]
